FAERS Safety Report 9468934 (Version 1)
Quarter: 2013Q3

REPORT INFORMATION
  Report Type: Spontaneous
  Country: FR (occurrence: FR)
  Receive Date: 20130821
  Receipt Date: 20130821
  Transmission Date: 20140515
  Serious: Yes (Hospitalization)
  Sender: FDA-Public Use
  Company Number: FR-MYLANLABS-2013S1017799

PATIENT
  Age: 32 Year
  Sex: Female

DRUGS (7)
  1. CLOZAPINE [Suspect]
     Indication: SCHIZOAFFECTIVE DISORDER
  2. CLOZAPINE [Suspect]
     Indication: BIPOLAR DISORDER
  3. CLOZAPINE [Suspect]
     Indication: SCHIZOAFFECTIVE DISORDER
  4. CLOZAPINE [Suspect]
     Indication: BIPOLAR DISORDER
  5. CLOZAPINE [Suspect]
     Indication: SCHIZOAFFECTIVE DISORDER
  6. CLOZAPINE [Suspect]
     Indication: BIPOLAR DISORDER
  7. ANTICHOLINERGICS [Concomitant]
     Indication: SALIVARY HYPERSECRETION

REACTIONS (3)
  - Schizophrenia [Recovering/Resolving]
  - Parotitis [Recovering/Resolving]
  - Salivary hypersecretion [Recovering/Resolving]
